FAERS Safety Report 23771732 (Version 1)
Quarter: 2024Q2

REPORT INFORMATION
  Report Type: Spontaneous
  Country: US (occurrence: US)
  Receive Date: 20240423
  Receipt Date: 20240423
  Transmission Date: 20240716
  Serious: Yes (Life-Threatening, Hospitalization, Other)
  Sender: FDA-Public Use
  Company Number: US-MLMSERVICE-20161104-0484540-1

PATIENT

DRUGS (3)
  1. TACROLIMUS [Suspect]
     Active Substance: TACROLIMUS
     Indication: Immunosuppressant drug therapy
     Dosage: UNK
     Route: 065
  2. ACETAZOLAMIDE [Concomitant]
     Active Substance: ACETAZOLAMIDE
     Indication: Idiopathic intracranial hypertension
     Dosage: UNK
     Route: 065
  3. ACETAZOLAMIDE [Concomitant]
     Active Substance: ACETAZOLAMIDE
     Dosage: DOSE INCREASED
     Route: 065

REACTIONS (5)
  - Retinal haemorrhage [Recovered/Resolved]
  - Cavernous sinus thrombosis [Not Recovered/Not Resolved]
  - Cerebrovascular accident [Not Recovered/Not Resolved]
  - Thrombotic microangiopathy [Not Recovered/Not Resolved]
  - Blindness [Not Recovered/Not Resolved]
